FAERS Safety Report 4425100-1 (Version None)
Quarter: 2004Q3

REPORT INFORMATION
  Report Type: 
  Country: None (occurrence: None)
  Receive Date: 20040813
  Receipt Date: 20040804
  Transmission Date: 20050211
  Serious: Yes (Hospitalization)
  Sender: FDA-Public Use
  Company Number: JP-JNJFOC-20040702592

PATIENT
  Age: 84 Year
  Sex: Male

DRUGS (10)
  1. OFLOXACIN [Suspect]
     Route: 042
     Dates: start: 20040609, end: 20040610
  2. AUGMENTIN '125' [Suspect]
     Route: 042
     Dates: start: 20040609, end: 20040610
  3. AUGMENTIN '125' [Suspect]
     Route: 042
     Dates: start: 20040609, end: 20040610
  4. LASIX [Concomitant]
     Route: 049
  5. LOVENOX [Concomitant]
     Route: 058
  6. DILTIAZEM HYDROCHLORIDE [Concomitant]
     Route: 049
  7. ASPEGIC 325 [Concomitant]
     Route: 049
  8. KALEORID [Concomitant]
  9. VASTAREL [Concomitant]
  10. NITROGLYCERIN [Concomitant]

REACTIONS (4)
  - CHRONIC MYELOID LEUKAEMIA [None]
  - CHRONIC MYELOMONOCYTIC LEUKAEMIA [None]
  - PRURITUS GENERALISED [None]
  - VASCULAR PURPURA [None]
